FAERS Safety Report 22816426 (Version 3)
Quarter: 2023Q4

REPORT INFORMATION
  Report Type: Report from Study
  Country: US (occurrence: US)
  Receive Date: 20230811
  Receipt Date: 20231005
  Transmission Date: 20240110
  Serious: Yes (Other)
  Sender: FDA-Public Use
  Company Number: US-ABBVIE-4769086

PATIENT
  Age: 66 Year
  Sex: Female
  Weight: 132.0 kg

DRUGS (20)
  1. SKYRIZI [Suspect]
     Active Substance: RISANKIZUMAB-RZAA
     Indication: Psoriatic arthropathy
     Dosage: FORM STRENGTH: 150 MG/ML WEEK 0, WEEK 4 AND EVERY 12 WEEKS THEREAFTER
     Route: 058
     Dates: start: 20221102
  2. SKYRIZI [Suspect]
     Active Substance: RISANKIZUMAB-RZAA
     Dosage: FORM STRENGTH: 150 MG/ML,
     Route: 058
  3. SKYRIZI [Suspect]
     Active Substance: RISANKIZUMAB-RZAA
     Dosage: FORM STRENGTH: 150 MG/ML, LAST ADMIN DATE: 2022
     Route: 058
     Dates: start: 20221017
  4. ACETAMINOPHEN [Concomitant]
     Active Substance: ACETAMINOPHEN
     Indication: Product used for unknown indication
     Dates: start: 20230720
  5. CODEINE [Concomitant]
     Active Substance: CODEINE
     Indication: Product used for unknown indication
     Dates: start: 20230720
  6. VITAMIN C [Concomitant]
     Active Substance: ASCORBIC ACID
     Indication: Product used for unknown indication
     Dosage: FORM STREGNTH: 500 MG
     Dates: start: 20230714
  7. VITAMIN C [Concomitant]
     Active Substance: ASCORBIC ACID
     Indication: Product used for unknown indication
     Dosage: LAST ADMIN DATE: 2023
     Dates: start: 20230210
  8. AZELAIC ACID [Concomitant]
     Active Substance: AZELAIC ACID
     Indication: Product used for unknown indication
     Dosage: 15% TOPICAL GEL, APPLY TO FACE TWICE A DAY
     Dates: start: 20230216
  9. BENEFIBER [Concomitant]
     Active Substance: STARCH, WHEAT
     Indication: Product used for unknown indication
     Dosage: 2-3 TIMES DAILY
     Dates: start: 20221230
  10. BREXPIPRAZOLE [Concomitant]
     Active Substance: BREXPIPRAZOLE
     Indication: Product used for unknown indication
     Dates: start: 20230113
  11. CHLORHEXIDINE GLUCONATE [Concomitant]
     Active Substance: CHLORHEXIDINE GLUCONATE
     Indication: Product used for unknown indication
     Dates: start: 20230714
  12. VITAMIN D3 [Concomitant]
     Active Substance: CHOLECALCIFEROL
     Indication: Product used for unknown indication
     Dosage: 50 MCG (2,000 UNIT)
     Dates: start: 20150820
  13. DIETARY SUPPLEMENT [Concomitant]
     Active Substance: DIETARY SUPPLEMENT
     Indication: Product used for unknown indication
     Dosage: 200 MG (36 MG PAC), TAKE 1 CAPSULE(S) EVERY DAY BY ORAL ROUTE
     Route: 048
     Dates: start: 20221230
  14. FISH OIL [Concomitant]
     Active Substance: FISH OIL
     Indication: Product used for unknown indication
     Dosage: 2 DAILY
     Dates: start: 20200826
  15. SERTRALINE [Concomitant]
     Active Substance: SERTRALINE HYDROCHLORIDE
     Indication: Product used for unknown indication
     Route: 048
     Dates: start: 20150820
  16. SERTRALINE [Concomitant]
     Active Substance: SERTRALINE HYDROCHLORIDE
     Indication: Product used for unknown indication
     Dosage: TAKE 1 TABLET BY MOUTH EVERYDAY AT BEDTIME
     Route: 048
     Dates: start: 20230106
  17. TRIAMCINOLONE ACETONIDE [Concomitant]
     Active Substance: TRIAMCINOLONE ACETONIDE
     Indication: Product used for unknown indication
     Dosage: 0.1 %, APPLY 1 APPLICATION EXTERNALLY TWICE A DAY FOR 10 DAYS
     Route: 061
     Dates: start: 20230802
  18. VITAMIN D [Concomitant]
     Active Substance: VITAMIN D NOS
     Indication: Product used for unknown indication
     Dates: start: 20170828
  19. NICOTINAMIDE [Concomitant]
     Active Substance: NIACINAMIDE
     Indication: Product used for unknown indication
     Dates: start: 20221230
  20. REXULTI [Concomitant]
     Active Substance: BREXPIPRAZOLE
     Indication: Product used for unknown indication
     Dosage: TAKE 1 TABLET BY MOUTH EVERY DAY
     Route: 048
     Dates: start: 20230124

REACTIONS (20)
  - Gallbladder disorder [Recovered/Resolved]
  - Wound [Unknown]
  - Wound cellulitis [Unknown]
  - Dyspnoea exertional [Unknown]
  - Dyspepsia [Unknown]
  - Sarcoidosis [Unknown]
  - Hyponatraemia [Unknown]
  - Pleural effusion [Unknown]
  - Pleural disorder [Unknown]
  - Urticaria [Unknown]
  - Arthralgia [Unknown]
  - Dry mouth [Unknown]
  - Gastrooesophageal reflux disease [Unknown]
  - Hypertonic bladder [Unknown]
  - Vaginal discharge [Unknown]
  - Vulval disorder [Unknown]
  - Stress urinary incontinence [Unknown]
  - Postmenopausal haemorrhage [Unknown]
  - Urinary incontinence [Unknown]
  - Cervical dysplasia [Unknown]

NARRATIVE: CASE EVENT DATE: 20230430
